FAERS Safety Report 6618211-3 (Version None)
Quarter: 2010Q1

REPORT INFORMATION
  Report Type: 
  Country: None (occurrence: None)
  Receive Date: 20100308
  Receipt Date: 20100224
  Transmission Date: 20100710
  Serious: Yes (Other)
  Sender: FDA-Public Use
  Company Number: US-PFIZER INC-2009296372

PATIENT
  Sex: Male
  Weight: 89.3 kg

DRUGS (2)
  1. SUTENT [Suspect]
     Indication: RENAL CELL CARCINOMA
     Dosage: 50 MG, 1X/DAY, 4-2 CYCLE
     Route: 048
     Dates: start: 20090531
  2. METHOTREXATE [Concomitant]
     Indication: PSORIASIS
     Dosage: 2.5 MG, 1X/DAY
     Route: 048

REACTIONS (2)
  - MUSCLE SPASMS [None]
  - OEDEMA PERIPHERAL [None]
